FAERS Safety Report 7401740-2 (Version None)
Quarter: 2011Q2

REPORT INFORMATION
  Report Type: 
  Country: None (occurrence: None)
  Receive Date: 20110408
  Receipt Date: 20081103
  Transmission Date: 20111010
  Serious: Yes (Death, Other)
  Sender: FDA-Public Use
  Company Number: US-BAYER-200837471NA

PATIENT
  Sex: Female
  Weight: 78.4 kg

DRUGS (30)
  1. TRASYLOL [Suspect]
     Indication: CORONARY ARTERY BYPASS
     Dosage: 200 ML, LOADING DOSE
     Route: 042
     Dates: start: 20061222
  2. FOLIC ACID [Concomitant]
     Dosage: 1 MG, QD
     Route: 048
  3. NITROGLYCERIN [Concomitant]
     Dosage: UNK
     Route: 042
     Dates: start: 20061222
  4. MIDAZOLAM [Concomitant]
     Dosage: 20 MG, UNK
     Route: 042
     Dates: start: 20061222
  5. LASIX [Concomitant]
     Dosage: 40 MG, QD
     Route: 048
  6. COREG [Concomitant]
     Dosage: 6.25 MG, BID
     Route: 048
  7. EPINEPHRINE [Concomitant]
     Dosage: UNK
     Route: 042
     Dates: start: 20061222
  8. CALCIUM CHLORIDE [Concomitant]
     Dosage: UNK
     Route: 042
     Dates: start: 20061222
  9. MAGNESIUM SULFATE [Concomitant]
     Dosage: UNK
     Route: 042
     Dates: start: 20061222
  10. PROTAMINE SULFATE [Concomitant]
     Dosage: 400 MG, UNK
     Route: 042
     Dates: start: 20061222
  11. ALBUMIN (HUMAN) [Concomitant]
     Dosage: 200 ML, UNK
     Route: 042
     Dates: start: 20061222
  12. TRASYLOL [Suspect]
     Indication: AORTIC VALVE REPLACEMENT
  13. CAPTOPRIL [Concomitant]
     Dosage: 25 MG, BID
     Route: 048
  14. VASOPRESSIN [Concomitant]
     Dosage: 15, UNK
     Route: 042
     Dates: start: 20061222
  15. SODIUM CHLORIDE [Concomitant]
     Dosage: 50 MEQ, UNK
     Route: 042
     Dates: start: 20061222
  16. TRASYLOL [Suspect]
     Indication: ARTERIAL BYPASS OPERATION
  17. NEXIUM [Concomitant]
     Dosage: 40 MG, QD
     Route: 048
  18. POTASSIUM CHLORIDE [Concomitant]
     Dosage: UNK UNK, QD
     Route: 048
  19. ACETYLSALICYLIC ACID SRT [Concomitant]
     Dosage: UNK UNK, QD
     Route: 048
  20. POTASSIUM CHLORIDE [Concomitant]
     Dosage: 20 MEQ, UNK
     Route: 042
     Dates: start: 20061222
  21. CEFAZOLIN [Concomitant]
     Dosage: 2 G, UNK
     Route: 042
     Dates: start: 20061222
  22. REGULAR INSULIN [Concomitant]
     Dosage: UNK
     Route: 042
     Dates: start: 20061222
  23. MANNITOL [Concomitant]
     Dosage: 25 G, UNK
     Route: 042
     Dates: start: 20061222
  24. FENTANYL [Concomitant]
     Dosage: 160 ML, UNK
     Route: 042
     Dates: start: 20061222
  25. FRESH FROZEN PLASMA [Concomitant]
     Dosage: UNK
     Dates: start: 20061222
  26. LASIX [Concomitant]
     Dosage: 20 MG, UNK
     Route: 042
     Dates: start: 20061222
  27. ADVAIR HFA [Concomitant]
     Dosage: 1PUFF, BID
     Route: 055
  28. ALBUTEROL [Concomitant]
     Dosage: 2 PUFFS, Q4HRS PRN
     Route: 055
  29. HEPARIN [Concomitant]
     Dosage: UNK
     Route: 042
     Dates: start: 20061222
  30. PLATELETS [Concomitant]
     Dosage: UNK
     Dates: start: 20061222

REACTIONS (12)
  - MULTI-ORGAN FAILURE [None]
  - UNEVALUABLE EVENT [None]
  - ANHEDONIA [None]
  - RENAL FAILURE [None]
  - RENAL INJURY [None]
  - ANXIETY [None]
  - RENAL IMPAIRMENT [None]
  - FEAR [None]
  - INJURY [None]
  - DEATH [None]
  - STRESS [None]
  - PAIN [None]
